FAERS Safety Report 14718458 (Version 2)
Quarter: 2018Q3

REPORT INFORMATION
  Report Type: Spontaneous
  Country: US (occurrence: US)
  Receive Date: 20180404
  Receipt Date: 20180814
  Transmission Date: 20181010
  Serious: No
  Sender: FDA-Public Use
  Company Number: US-SA-2018SA081555

PATIENT
  Age: 81 Year
  Sex: Female
  Weight: 72.5 kg

DRUGS (18)
  1. ELIDEL [Concomitant]
     Active Substance: PIMECROLIMUS
     Indication: PRURITUS
  2. HYDROXYZINE HYDROCHLORIDE. [Concomitant]
     Active Substance: HYDROXYZINE HYDROCHLORIDE
     Indication: RASH
     Dosage: UNK UNK,HS
     Route: 065
     Dates: start: 2016
  3. DUPIXENT [Suspect]
     Active Substance: DUPILUMAB
     Indication: DERMATITIS ATOPIC
     Dosage: 600 MG,1X
     Route: 058
     Dates: start: 20180309, end: 20180309
  4. DUPIXENT [Suspect]
     Active Substance: DUPILUMAB
     Indication: PRURITUS
  5. FLUTICASONE. [Concomitant]
     Active Substance: FLUTICASONE
     Indication: RASH
     Dosage: UNK UNK,BID
     Route: 065
     Dates: start: 2015
  6. ELIDEL [Concomitant]
     Active Substance: PIMECROLIMUS
     Indication: SWELLING
  7. FLUTICASONE. [Concomitant]
     Active Substance: FLUTICASONE
     Indication: SWELLING
  8. FLUTICASONE. [Concomitant]
     Active Substance: FLUTICASONE
     Indication: PRURITUS
  9. ELIDEL [Concomitant]
     Active Substance: PIMECROLIMUS
     Indication: RASH
     Dosage: UNK UNK,BID
     Route: 065
     Dates: start: 2017, end: 2018
  10. FLUOCINONIDE. [Concomitant]
     Active Substance: FLUOCINONIDE
     Indication: RASH
     Dosage: UNK UNK,BID
     Route: 065
     Dates: start: 2015
  11. ERGOCALCIFEROL. [Concomitant]
     Active Substance: ERGOCALCIFEROL
  12. FLUOCINONIDE. [Concomitant]
     Active Substance: FLUOCINONIDE
     Indication: PRURITUS
  13. HYDROXYZINE HYDROCHLORIDE. [Concomitant]
     Active Substance: HYDROXYZINE HYDROCHLORIDE
     Indication: SWELLING
  14. CALCIUM [Concomitant]
     Active Substance: CALCIUM
  15. DUPIXENT [Suspect]
     Active Substance: DUPILUMAB
     Indication: RASH
     Dosage: 300 MG,QOW
     Route: 065
     Dates: start: 201803
  16. DUPIXENT [Suspect]
     Active Substance: DUPILUMAB
     Indication: SWELLING
  17. FLUOCINONIDE. [Concomitant]
     Active Substance: FLUOCINONIDE
     Indication: SWELLING
  18. HYDROXYZINE HYDROCHLORIDE. [Concomitant]
     Active Substance: HYDROXYZINE HYDROCHLORIDE
     Indication: PRURITUS

REACTIONS (2)
  - Symptom recurrence [Unknown]
  - Insomnia [Recovered/Resolved]

NARRATIVE: CASE EVENT DATE: 20180311
